FAERS Safety Report 5971586-0 (Version None)
Quarter: 2008Q4

REPORT INFORMATION
  Report Type: 
  Country: None (occurrence: None)
  Receive Date: 20081201
  Receipt Date: 20081119
  Transmission Date: 20090506
  Serious: Yes (Other)
  Sender: FDA-Public Use
  Company Number: IN-WYE-H06833008

PATIENT
  Sex: Female
  Weight: 58 kg

DRUGS (3)
  1. TEMSIROLIMUS [Suspect]
     Indication: METASTATIC RENAL CELL CARCINOMA
     Route: 042
     Dates: start: 20080930, end: 20081104
  2. TEMSIROLIMUS [Suspect]
     Route: 042
     Dates: start: 20081118
  3. BEVACIZUMAB, TEST ARTICLE IN TEMSIROLIMUS STUDY [Suspect]
     Indication: METASTATIC RENAL CELL CARCINOMA
     Route: 042
     Dates: start: 20080930

REACTIONS (2)
  - HYPERGLYCAEMIA [None]
  - KETOSIS [None]
